FAERS Safety Report 9524431 (Version 1)
Quarter: 2013Q3

REPORT INFORMATION
  Report Type: Spontaneous
  Country: US (occurrence: US)
  Receive Date: 20130916
  Receipt Date: 20130916
  Transmission Date: 20140515
  Serious: No
  Sender: FDA-Public Use
  Company Number: US-PFIZER INC-2013262926

PATIENT
  Sex: Female

DRUGS (2)
  1. DETROL [Suspect]
     Indication: HYPERTONIC BLADDER
     Dosage: UNK
     Route: 048
     Dates: start: 20130910
  2. DETROL LA [Suspect]
     Dosage: 8 MG, 1X/DAY
     Dates: start: 20130910

REACTIONS (1)
  - Drug ineffective [Unknown]
